FAERS Safety Report 16974309 (Version 1)
Quarter: 2019Q4

REPORT INFORMATION
  Report Type: Spontaneous
  Country: DE (occurrence: DE)
  Receive Date: 20191030
  Receipt Date: 20191030
  Transmission Date: 20200122
  Serious: Yes (Other)
  Sender: FDA-Public Use
  Company Number: DE-PFIZER INC-2019466541

PATIENT
  Age: 53 Year
  Sex: Male

DRUGS (2)
  1. DOCETAXEL. [Suspect]
     Active Substance: DOCETAXEL
     Dates: start: 20180801, end: 20180808
  2. VARGATEF [Suspect]
     Active Substance: NINTEDANIB
     Dates: start: 20180801, end: 20180815

REACTIONS (1)
  - Pneumonia [Unknown]
